FAERS Safety Report 9164747 (Version 1)
Quarter: 2013Q1

REPORT INFORMATION
  Report Type: Spontaneous
  Country: US (occurrence: US)
  Receive Date: 20130315
  Receipt Date: 20130315
  Transmission Date: 20140127
  Serious: No
  Sender: FDA-Public Use
  Company Number: US-PFIZER INC-2013085301

PATIENT
  Age: 40 Year
  Sex: Male

DRUGS (2)
  1. SOMAVERT [Suspect]
     Indication: ACROMEGALY
     Dosage: 20 MG, SDV
     Dates: start: 20130131
  2. SOMAVERT [Suspect]
     Indication: GIGANTISM
     Dosage: 15 MG, SDV
     Dates: start: 20130131

REACTIONS (1)
  - Drug ineffective [Unknown]
